FAERS Safety Report 5171158-4 (Version None)
Quarter: 2006Q4

REPORT INFORMATION
  Report Type: 
  Country: None (occurrence: None)
  Receive Date: 20061206
  Receipt Date: 20061206
  Transmission Date: 20070319
  Serious: Yes (Life-Threatening, Hospitalization)
  Sender: FDA-Public Use
  Company Number: None

PATIENT
  Age: 55 Year
  Sex: Male
  Weight: 72.5755 kg

DRUGS (2)
  1. ZOCOR [Suspect]
     Indication: BLOOD CHOLESTEROL
     Dosage: 20 MG 1 PER DAY PO
     Route: 048
     Dates: start: 20000315, end: 20061130
  2. LIPITOR [Suspect]
     Indication: BLOOD CHOLESTEROL
     Dosage: 20 MG 1 PER DAY PO
     Route: 048
     Dates: start: 20061130, end: 20061206

REACTIONS (3)
  - CONVULSION [None]
  - ILL-DEFINED DISORDER [None]
  - TREMOR [None]
